FAERS Safety Report 5301535-X (Version None)
Quarter: 2007Q2

REPORT INFORMATION
  Report Type: 
  Country: None (occurrence: None)
  Receive Date: 20070412
  Receipt Date: 20070327
  Transmission Date: 20071010
  Serious: Yes (Hospitalization, Disabling)
  Sender: FDA-Public Use
  Company Number: 6031478

PATIENT
  Age: 67 Year
  Sex: Female

DRUGS (8)
  1. LEVOTHYROXINE SODIUM [Suspect]
     Indication: HYPOTHYROIDISM
     Dosage: 75 MCG (75 MCG, 1 D), ORAL/LONG TERM TREATMENT
     Route: 048
  2. SINTROM (TABLET) (ACENOCOUMAROL) [Suspect]
     Indication: ATRIAL FIBRILLATION
     Dosage: 4 MG (4 MG, 1 D), ORAL
     Route: 048
     Dates: start: 20061215
  3. CORDARONE [Suspect]
     Indication: ATRIAL FIBRILLATION
     Dosage: 400 MG (200 MG, 2 IN 1 D), ORAL
     Route: 048
     Dates: start: 20061215
  4. SPECIAFOLDINE (TABLET) (FOLIC ACID) [Suspect]
     Indication: ANAEMIA
     Dosage: 10 MG (5 MG, 2 IN 1 D), ORAL
     Route: 048
  5. TARDYFERON (TABLET) (FERROUS SULFATE) [Suspect]
     Indication: ANAEMIA
     Dosage: 80 MG (80 MG, 1 D), ORAL
     Route: 048
  6. FUROSEMIDE [Suspect]
     Indication: ESSENTIAL HYPERTENSION
     Dosage: 80 MG (40 MG, 2 IN 1 D), ORAL
     Route: 048
  7. RIVOTRIL (TABLET) (CLONAZEPAM) [Concomitant]
  8. .. [Concomitant]

REACTIONS (8)
  - ANAEMIA [None]
  - DRUG INTERACTION [None]
  - HYPOVENTILATION [None]
  - INTERNATIONAL NORMALISED RATIO INCREASED [None]
  - LOSS OF CONSCIOUSNESS [None]
  - PROTHROMBIN TIME SHORTENED [None]
  - SUBARACHNOID HAEMORRHAGE [None]
  - SUBDURAL HAEMATOMA [None]
